FAERS Safety Report 24340779 (Version 1)
Quarter: 2024Q3

REPORT INFORMATION
  Report Type: Spontaneous
  Country: FR (occurrence: FR)
  Receive Date: 20240919
  Receipt Date: 20240919
  Transmission Date: 20241017
  Serious: Yes (Hospitalization)
  Sender: ELI LILLY AND CO
  Company Number: None

PATIENT
  Age: 75 Year
  Sex: Male

DRUGS (13)
  1. HUMALOG [Suspect]
     Active Substance: INSULIN LISPRO
     Indication: Insulin-requiring type 2 diabetes mellitus
     Dosage: MATIN ET MIDI
     Route: 058
     Dates: start: 20240809
  2. INSULIN GLARGINE [Suspect]
     Active Substance: INSULIN GLARGINE
     Indication: Insulin-requiring type 2 diabetes mellitus
     Dosage: LE SOIR
     Route: 058
     Dates: start: 20240809
  3. APIXABAN [Suspect]
     Active Substance: APIXABAN
     Indication: Atrial fibrillation
     Dosage: 5 MG, BID
     Route: 048
     Dates: start: 20240809
  4. AMLODIPINE [Concomitant]
     Active Substance: AMLODIPINE BESYLATE
     Indication: Hypertension
     Route: 048
  5. FUROSEMIDE [Concomitant]
     Active Substance: FUROSEMIDE
     Indication: Cardiac failure
     Dosage: 125MG MATIN ET 40MIDI
     Route: 048
  6. DAPAGLIFLOZIN [Concomitant]
     Active Substance: DAPAGLIFLOZIN
     Indication: Type 2 diabetes mellitus
     Route: 048
  7. METFORMIN HYDROCHLORIDE [Concomitant]
     Active Substance: METFORMIN HYDROCHLORIDE
     Indication: Type 2 diabetes mellitus
     Dosage: 1000 MG, BID
     Route: 048
  8. IRBESARTAN [Concomitant]
     Active Substance: IRBESARTAN
     Indication: Hypertension
     Route: 048
  9. BISOPROLOL FUMARATE [Concomitant]
     Active Substance: BISOPROLOL FUMARATE
     Indication: Hypertension
     Route: 048
  10. ATORVASTATIN [Concomitant]
     Active Substance: ATORVASTATIN
     Indication: Hypercholesterolaemia
     Route: 048
  11. POTASSIUM CHLORIDE [Concomitant]
     Active Substance: POTASSIUM CHLORIDE
     Indication: Hypokalaemia
     Route: 048
     Dates: start: 20240809
  12. TAMSULOSIN HYDROCHLORIDE [Concomitant]
     Active Substance: TAMSULOSIN HYDROCHLORIDE
     Indication: Dysuria
     Route: 048
     Dates: start: 20240809
  13. ASPIRIN DL-LYSINE [Concomitant]
     Active Substance: ASPIRIN DL-LYSINE
     Indication: Renal artery stenosis
     Route: 048

REACTIONS (1)
  - Eosinophilia [Not Recovered/Not Resolved]

NARRATIVE: CASE EVENT DATE: 20240814
